FAERS Safety Report 4632165-0 (Version None)
Quarter: 2005Q2

REPORT INFORMATION
  Report Type: 
  Country: None (occurrence: None)
  Receive Date: 20050401
  Receipt Date: 20040915
  Transmission Date: 20051028
  Serious: Yes (Hospitalization)
  Sender: FDA-Public Use
  Company Number: 04P-163-0273350-00

PATIENT
  Age: 16 Year
  Sex: Female
  Weight: 44.4525 kg

DRUGS (5)
  1. DEPAKOTE [Suspect]
     Indication: BIPOLAR DISORDER
     Dosage: 750 MG, 1 IN 1 D, ORAL
     Route: 048
     Dates: start: 20040801, end: 20040828
  2. DEPAKOTE [Suspect]
     Indication: BIPOLAR DISORDER
     Dosage: 750 MG, 1 IN 1 D, ORAL
     Route: 048
     Dates: start: 20040907
  3. ISOPHANE INSULIN [Concomitant]
  4. QUETIAPINE [Concomitant]
  5. FLUOXETINE HCL [Concomitant]

REACTIONS (2)
  - AGGRESSION [None]
  - PSYCHOTIC DISORDER [None]
